FAERS Safety Report 19704308 (Version 1)
Quarter: 2021Q3

REPORT INFORMATION
  Report Type: Spontaneous
  Country: US (occurrence: US)
  Receive Date: 20210815
  Receipt Date: 20210815
  Transmission Date: 20211014
  Serious: Yes (Disabling)
  Sender: FDA-Public Use
  Company Number: None

PATIENT
  Age: 73 Year
  Sex: Female
  Weight: 65.25 kg

DRUGS (5)
  1. HYDRAZALINE [Concomitant]
  2. VITAMIN D3 [Concomitant]
     Active Substance: CHOLECALCIFEROL
  3. LEVOCITERIZINE [Concomitant]
  4. OLMESARTAN HCTZ 40?12.5 MG TAB [Suspect]
     Active Substance: HYDROCHLOROTHIAZIDE\OLMESARTAN MEDOXOMIL
     Indication: HYPERTENSION
     Dosage: ?          QUANTITY:1 TABLET(S);?
     Route: 048
     Dates: start: 20191209, end: 20210804
  5. BYSTOLIC [Concomitant]
     Active Substance: NEBIVOLOL HYDROCHLORIDE

REACTIONS (1)
  - Diarrhoea [None]

NARRATIVE: CASE EVENT DATE: 20210601
